FAERS Safety Report 8530476-X (Version None)
Quarter: 2012Q3

REPORT INFORMATION
  Report Type: 
  Country: None (occurrence: None)
  Receive Date: 20120723
  Receipt Date: 20120716
  Transmission Date: 20120928
  Serious: Yes (Death, Other)
  Sender: FDA-Public Use
  Company Number: JP-CELGENEUS-087-50794-11091962

PATIENT
  Age: 45 Year
  Sex: Male
  Weight: 52 kg

DRUGS (19)
  1. VIDAZA [Suspect]
     Dosage: 100 MILLIGRAM
     Route: 041
     Dates: start: 20110621, end: 20110627
  2. MAXIPIME [Concomitant]
     Route: 065
     Dates: end: 20110426
  3. MAXIPIME [Concomitant]
     Route: 065
     Dates: start: 20110824
  4. MERCAPTOPURINE [Concomitant]
     Route: 065
     Dates: end: 20110427
  5. LEVOFLOXACIN [Concomitant]
     Route: 065
     Dates: start: 20110515
  6. VIDAZA [Suspect]
     Dosage: 100 MILLIGRAM
     Route: 041
     Dates: start: 20110725, end: 20110731
  7. MAXIPIME [Concomitant]
     Route: 065
     Dates: start: 20110714, end: 20110720
  8. ANTIBIOTICS [Concomitant]
     Indication: FEBRILE NEUTROPENIA
     Route: 065
     Dates: start: 20110714
  9. VIDAZA [Suspect]
     Indication: ACUTE MYELOID LEUKAEMIA
     Dosage: 100 MILLIGRAM
     Route: 041
     Dates: start: 20110425, end: 20110501
  10. VIDAZA [Suspect]
     Dosage: 100 MILLIGRAM
     Route: 041
     Dates: start: 20110822, end: 20110825
  11. SULFAMETHOXAZOLE AND TRIMETHOPRIM [Concomitant]
     Route: 065
  12. FLUCONAZOLE [Concomitant]
     Route: 065
  13. NOVANTRONE [Concomitant]
     Route: 065
     Dates: start: 20110716, end: 20110717
  14. MEROPENEM [Concomitant]
     Route: 065
     Dates: start: 20110721, end: 20110805
  15. HYDREA [Concomitant]
     Route: 065
     Dates: start: 20110724, end: 20110826
  16. VALTREX [Concomitant]
     Route: 065
  17. VIDAZA [Suspect]
     Dosage: 100 MILLIGRAM
     Route: 041
     Dates: start: 20110523, end: 20110529
  18. MERCAPTOPURINE [Concomitant]
     Route: 065
     Dates: start: 20110516, end: 20110523
  19. ANTIBIOTICS [Concomitant]
     Route: 065
     Dates: start: 20110824

REACTIONS (3)
  - SUBARACHNOID HAEMORRHAGE [None]
  - ACUTE MYELOID LEUKAEMIA [None]
  - FEBRILE NEUTROPENIA [None]
